FAERS Safety Report 10180223 (Version 1)
Quarter: 2014Q2

REPORT INFORMATION
  Report Type: Spontaneous
  Country: US (occurrence: US)
  Receive Date: 20140519
  Receipt Date: 20140519
  Transmission Date: 20141212
  Serious: No
  Sender: FDA-Public Use
  Company Number: US-AMGEN INC.-USASP2013087272

PATIENT
  Age: 73 Year
  Sex: Female

DRUGS (3)
  1. PROLIA [Suspect]
     Indication: PRODUCT USED FOR UNKNOWN INDICATION
     Dosage: UNK
     Route: 065
     Dates: start: 20130701
  2. ZETIA [Concomitant]
     Dosage: UNK
     Route: 065
  3. PREMARIN [Concomitant]
     Dosage: UNK
     Route: 065

REACTIONS (7)
  - Decreased activity [Unknown]
  - Musculoskeletal stiffness [Unknown]
  - Pain [Unknown]
  - Low density lipoprotein increased [Unknown]
  - Arthralgia [Unknown]
  - Bone pain [Unknown]
  - Pain in extremity [Unknown]
